FAERS Safety Report 18209285 (Version 1)
Quarter: 2020Q3

REPORT INFORMATION
  Report Type: Spontaneous
  Country: US (occurrence: US)
  Receive Date: 20200828
  Receipt Date: 20200828
  Transmission Date: 20201103
  Serious: No
  Sender: FDA-Public Use
  Company Number: US-MYLANLABS-2020M1072922

PATIENT
  Sex: Male

DRUGS (2)
  1. MUSE [Suspect]
     Active Substance: ALPROSTADIL
     Indication: ERECTILE DYSFUNCTION
     Dosage: 1000 MICROGRAM
     Route: 050
  2. MUSE [Suspect]
     Active Substance: ALPROSTADIL
     Dosage: TAKEN 2 SUPPOSITORIES

REACTIONS (2)
  - Overdose [Recovered/Resolved]
  - Priapism [Recovered/Resolved]
